FAERS Safety Report 13579820 (Version 1)
Quarter: 2017Q2

REPORT INFORMATION
  Report Type: Spontaneous
  Country: US (occurrence: US)
  Receive Date: 20170525
  Receipt Date: 20170525
  Transmission Date: 20170830
  Serious: Yes (Other)
  Sender: FDA-Public Use
  Company Number: US-CLINIGEN GROUP PLC/ CLINIGEN HEALTHCARE LTD-E2B_00004545

PATIENT
  Sex: Male
  Weight: 59.1 kg

DRUGS (13)
  1. FOSCAVIR [Suspect]
     Active Substance: FOSCARNET SODIUM
     Dosage: DOSE: 90 MG/KG TOTAL DAILY DOSE: 90 MG/KG
     Route: 042
  2. HOMATROPINE EYE DROPS [Concomitant]
     Dosage: DOSE: 1 GTT TOTAL DAILY DOSE: 3 GTT
     Route: 045
  3. PREPULSID [Concomitant]
     Active Substance: CISAPRIDE
     Dosage: DOSE: 20 MG TOTAL DAILY DOSE: 40 MG
     Route: 065
  4. FOSCAVIR [Suspect]
     Active Substance: FOSCARNET SODIUM
     Dosage: DOSE: 60 MG/KG TOTAL DAILY DOSE: 180 MG/KG
     Route: 042
  5. BACTRIM DS [Concomitant]
     Active Substance: SULFAMETHOXAZOLE\TRIMETHOPRIM
     Route: 065
  6. COLACE [Concomitant]
     Active Substance: DOCUSATE SODIUM
     Route: 065
  7. MYCELEX [Concomitant]
     Active Substance: CLOTRIMAZOLE
     Route: 048
  8. IMODIUM [Concomitant]
     Active Substance: LOPERAMIDE HYDROCHLORIDE
     Dosage: DOSE: 2 MG
     Route: 048
  9. NOVULIN [Concomitant]
     Route: 065
  10. PRED FORTE [Concomitant]
     Active Substance: PREDNISOLONE ACETATE
     Dosage: DOSE: 1 GTT TOTAL DAILY DOSE: 4 GTT
     Route: 045
  11. FOSCAVIR [Suspect]
     Active Substance: FOSCARNET SODIUM
     Indication: CYTOMEGALOVIRUS CHORIORETINITIS
     Dosage: DOSE: 3500 MG TOTAL DAILY DOSE: 10500 MG
     Route: 042
     Dates: start: 19941123
  12. AMITRIPTYLINE [Concomitant]
     Active Substance: AMITRIPTYLINE
     Dosage: DOSE: 75 MG TOTAL DAILY DOSE: 75 MG
     Route: 048
  13. COMPAZINE [Concomitant]
     Active Substance: PROCHLORPERAZINE MALEATE
     Route: 065

REACTIONS (4)
  - Confusional state [Unknown]
  - Amnesia [Unknown]
  - Hypomagnesaemia [Unknown]
  - Hypokalaemia [Unknown]
